FAERS Safety Report 6182590-4 (Version None)
Quarter: 2009Q2

REPORT INFORMATION
  Report Type: 
  Country: None (occurrence: None)
  Receive Date: 20090507
  Receipt Date: 20090429
  Transmission Date: 20091009
  Serious: Yes (Hospitalization, Other)
  Sender: FDA-Public Use
  Company Number: KR-PFIZER INC-2009208368

PATIENT

DRUGS (1)
  1. METRONIDAZOLE AND METRONIDAZOLE BENZOATE AND METRONIDAZOLE HYDROCHLORI [Suspect]
     Indication: LIVER ABSCESS
     Dosage: 500 MG, 4X/DAY

REACTIONS (2)
  - DYSARTHRIA [None]
  - ENCEPHALOPATHY [None]
